FAERS Safety Report 4983253-0 (Version None)
Quarter: 2006Q2

REPORT INFORMATION
  Report Type: 
  Country: None (occurrence: None)
  Receive Date: 20060426
  Receipt Date: 20060419
  Transmission Date: 20061013
  Serious: Yes (Other)
  Sender: FDA-Public Use
  Company Number: CN-JNJFOC-20060404176

PATIENT
  Sex: Female

DRUGS (1)
  1. DAKTARIN [Suspect]
     Route: 067
     Dates: start: 20060324, end: 20060405

REACTIONS (3)
  - DRUG EXPOSURE DURING PREGNANCY [None]
  - HEART SOUNDS ABNORMAL [None]
  - ULTRASOUND ANTENATAL SCREEN ABNORMAL [None]
